FAERS Safety Report 9698227 (Version 1)
Quarter: 2013Q4

REPORT INFORMATION
  Report Type: Spontaneous
  Country: US (occurrence: None)
  Receive Date: 20131104
  Receipt Date: 20131104
  Transmission Date: 20140711
  Serious: Yes (Other)
  Sender: FDA-Public Use
  Company Number: 2013038422

PATIENT
  Age: 40 Year
  Sex: Male

DRUGS (5)
  1. IV IMMUNOGLOBULIN (IMMUNE GLOBULIN INTRAVENOUS [Suspect]
     Indication: GUILLAIN-BARRE SYNDROME
     Route: 042
  2. IV IMMUNOGLOBULIN (IMMUNE GLOBULIN INTRAVENOUS [Suspect]
     Indication: GUILLAIN-BARRE SYNDROME
     Route: 042
  3. PREDNISONE (PREDNISONE) [Concomitant]
  4. MYCOPHENOLATE MOFETIL (MYCOPHENOLATE MOFETIL) [Concomitant]
  5. METHYLPREDNISOLONE (METHYLPREDNISOLONE) [Concomitant]

REACTIONS (8)
  - Off label use [None]
  - Mass [None]
  - Osteomyelitis [None]
  - Erectile dysfunction [None]
  - Clubbing [None]
  - Papilloedema [None]
  - POEMS syndrome [None]
  - Drug ineffective [None]
